FAERS Safety Report 10973880 (Version 1)
Quarter: 2015Q2

REPORT INFORMATION
  Report Type: Spontaneous
  Country: IT (occurrence: IT)
  Receive Date: 20150401
  Receipt Date: 20150401
  Transmission Date: 20150821
  Serious: Yes (Hospitalization)
  Sender: FDA-Public Use
  Company Number: IT-ROCHE-1559031

PATIENT
  Age: 76 Year
  Sex: Male

DRUGS (4)
  1. TRIATEC (ITALY) [Concomitant]
     Active Substance: RAMIPRIL
     Route: 065
  2. NOVORAPID [Concomitant]
     Active Substance: INSULIN ASPART
  3. LUCENTIS [Suspect]
     Active Substance: RANIBIZUMAB
     Indication: DIABETIC RETINAL OEDEMA
     Route: 031
     Dates: start: 20150216, end: 20150216
  4. TICLOPIDINE [Concomitant]
     Active Substance: TICLOPIDINE
     Route: 065

REACTIONS (3)
  - Vomiting [Recovering/Resolving]
  - Cerebral ischaemia [Recovering/Resolving]
  - Hemiparesis [Recovering/Resolving]

NARRATIVE: CASE EVENT DATE: 20150217
